FAERS Safety Report 8099935 (Version 2)
Quarter: 2013Q2

REPORT INFORMATION
  Report Type: Report from Study
  Country: MX (occurrence: MX)
  Receive Date: 20110822
  Receipt Date: 20130611
  Transmission Date: 20140414
  Serious: Yes (Other)
  Sender: FDA-Public Use
  Company Number: PHHY2011MX72174

PATIENT
  Age: 75 Year
  Sex: Female

DRUGS (4)
  1. DIOVAN [Suspect]
     Indication: HYPERTENSION
     Dosage: 80 MG, 1 TABLET PER DAY
     Route: 048
     Dates: start: 200608
  2. PLAVIX [Concomitant]
  3. ISOSORBIDE [Concomitant]
  4. ASPIRINA PROTECT [Concomitant]

REACTIONS (4)
  - Sense of oppression [Not Recovered/Not Resolved]
  - Chest pain [Not Recovered/Not Resolved]
  - Fatigue [Not Recovered/Not Resolved]
  - Dizziness [Not Recovered/Not Resolved]
